FAERS Safety Report 6765657-9 (Version None)
Quarter: 2010Q2

REPORT INFORMATION
  Report Type: 
  Country: None (occurrence: None)
  Receive Date: 20100611
  Receipt Date: 20100602
  Transmission Date: 20101027
  Serious: Yes (Other)
  Sender: FDA-Public Use
  Company Number: US-PFIZER INC-2010069990

PATIENT
  Sex: Female
  Weight: 70.295 kg

DRUGS (6)
  1. CELEBREX [Suspect]
     Indication: BACK PAIN
     Dosage: 400 MG, 2X/DAY
     Route: 048
     Dates: start: 20100101
  2. LEVOTHYROXINE [Concomitant]
     Indication: THYROID DISORDER
     Dosage: 25 MG, DAILY
  3. AMLODIPINE [Concomitant]
     Indication: BLOOD PRESSURE ABNORMAL
     Dosage: 5 MG, UNK
  4. EFFEXOR [Concomitant]
     Indication: DEPRESSION
     Dosage: 150 MG, 2X/DAY
  5. LEXAPRO [Concomitant]
     Dosage: UNK
  6. METHOCARBAMOL [Concomitant]
     Indication: MUSCLE DISORDER
     Dosage: 500 MG, UNK

REACTIONS (21)
  - ABDOMINAL DISCOMFORT [None]
  - ABDOMINAL DISTENSION [None]
  - ABDOMINAL PAIN [None]
  - ANGER [None]
  - BACK PAIN [None]
  - BODY HEIGHT DECREASED [None]
  - COUGH [None]
  - CYST [None]
  - DECREASED APPETITE [None]
  - DEPRESSION [None]
  - DRUG TOXICITY [None]
  - DYSPEPSIA [None]
  - FATIGUE [None]
  - MOVEMENT DISORDER [None]
  - MUSCULOSKELETAL PAIN [None]
  - NAUSEA [None]
  - PAIN IN EXTREMITY [None]
  - SNEEZING [None]
  - VERTEBROPLASTY [None]
  - VOMITING [None]
  - WEIGHT DECREASED [None]
